FAERS Safety Report 12937655 (Version 5)
Quarter: 2017Q3

REPORT INFORMATION
  Report Type: Spontaneous
  Country: JP (occurrence: JP)
  Receive Date: 20161114
  Receipt Date: 20170707
  Transmission Date: 20171127
  Serious: Yes (Hospitalization, Other)
  Sender: FDA-Public Use
  Company Number: JP-OTSUKA-2016_026262AA

PATIENT
  Age: 42 Year
  Sex: Male

DRUGS (3)
  1. SAMSCA [Suspect]
     Active Substance: TOLVAPTAN
     Indication: CONGENITAL CYSTIC KIDNEY DISEASE
     Dosage: 3.75MG/DAY
     Route: 065
     Dates: start: 201704
  2. SAMSCA 30 MG [Suspect]
     Active Substance: TOLVAPTAN
     Indication: CONGENITAL CYSTIC KIDNEY DISEASE
     Dosage: 30MG, DAILY DOSE
     Route: 048
     Dates: start: 20161028, end: 20170120
  3. SAMSCA 30 MG [Suspect]
     Active Substance: TOLVAPTAN
     Dosage: 60 MG, DAILY DOSE
     Route: 048
     Dates: start: 20160720, end: 20161027

REACTIONS (8)
  - Alanine aminotransferase increased [Recovered/Resolved]
  - Aspartate aminotransferase increased [Unknown]
  - Alanine aminotransferase increased [Unknown]
  - Jaundice [Recovered/Resolved]
  - Aspartate aminotransferase increased [Recovered/Resolved]
  - Malaise [Recovered/Resolved]
  - Aspartate aminotransferase increased [Unknown]
  - Alanine aminotransferase increased [Unknown]

NARRATIVE: CASE EVENT DATE: 20161028
